FAERS Safety Report 15815530 (Version 2)
Quarter: 2020Q2

REPORT INFORMATION
  Report Type: Spontaneous
  Country: GB (occurrence: GB)
  Receive Date: 20190112
  Receipt Date: 20200416
  Transmission Date: 20200713
  Serious: Yes (Life-Threatening, Hospitalization, Disabling, Other)
  Sender: FDA-Public Use
  Company Number: PHHY2019GB003849

PATIENT
  Age: 89 Year
  Sex: Male
  Weight: 68 kg

DRUGS (16)
  1. SODIUM CHLORIDE. [Concomitant]
     Active Substance: SODIUM CHLORIDE
     Indication: PRODUCT USED FOR UNKNOWN INDICATION
     Dosage: UNK
     Route: 065
     Dates: start: 20181025
  2. SPIRONOLACTONE. [Concomitant]
     Active Substance: SPIRONOLACTONE
     Indication: CARDIAC FAILURE CONGESTIVE
  3. NUTRITION SUPPLEMENTS [Concomitant]
     Active Substance: DIETARY SUPPLEMENT
     Indication: PRODUCT USED FOR UNKNOWN INDICATION
     Dosage: AFTER FOOD
     Route: 065
     Dates: start: 20181203
  4. FUROSEMIDE. [Concomitant]
     Active Substance: FUROSEMIDE
     Indication: PRODUCT USED FOR UNKNOWN INDICATION
     Dosage: 40 MG, QD
     Route: 048
  5. EMULSIFYING WAX [Concomitant]
     Indication: DRY SKIN
     Dosage: THREE TIMES DAILY
     Route: 061
  6. SIMVASTATIN. [Concomitant]
     Active Substance: SIMVASTATIN
     Indication: PRODUCT USED FOR UNKNOWN INDICATION
     Dosage: 20 MG, QHS
     Route: 048
  7. PARAFFIN YELLO [Concomitant]
     Indication: DRY SKIN
     Dosage: THREE TIMES DAILY
     Route: 061
  8. PROCHLORPERAZINE. [Concomitant]
     Active Substance: PROCHLORPERAZINE
     Indication: NAUSEA
     Dosage: WHILST ON ANTIBIOTICS
     Route: 048
     Dates: start: 20181204
  9. LANSOPRAZOLE. [Concomitant]
     Active Substance: LANSOPRAZOLE
     Indication: GASTROOESOPHAGEAL REFLUX DISEASE
     Dosage: 15 MG, QD
     Route: 048
     Dates: start: 20181127
  10. SODIUM FUSIDATE [Suspect]
     Active Substance: FUSIDATE SODIUM
     Indication: OSTEOMYELITIS CHRONIC
     Dosage: 1000 MG, QD
     Route: 048
     Dates: start: 20181126, end: 20181210
  11. SODIUM FUSIDATE [Suspect]
     Active Substance: FUSIDATE SODIUM
     Dosage: 1500 MG, QD
     Route: 048
     Dates: start: 20181126, end: 20181210
  12. APIXABAN [Concomitant]
     Active Substance: APIXABAN
     Indication: PRODUCT USED FOR UNKNOWN INDICATION
     Dosage: 10 MG, QD
     Route: 048
  13. DOXYCYCLINE. [Suspect]
     Active Substance: DOXYCYCLINE
     Indication: OSTEOMYELITIS CHRONIC
     Dosage: FOR 2 WEEKS WITH SODIUM FUSIDATE
     Route: 048
     Dates: start: 20181126, end: 20181210
  14. FINASTERIDE. [Concomitant]
     Active Substance: FINASTERIDE
     Indication: PRODUCT USED FOR UNKNOWN INDICATION
     Dosage: 5 MG, QD
     Route: 048
  15. SPIRONOLACTONE. [Concomitant]
     Active Substance: SPIRONOLACTONE
     Indication: PRODUCT USED FOR UNKNOWN INDICATION
     Dosage: 25 MG, QD
     Route: 048
     Dates: start: 20181022
  16. BISOPROLOL [Concomitant]
     Active Substance: BISOPROLOL
     Indication: PRODUCT USED FOR UNKNOWN INDICATION
     Dosage: 5 MG, QD
     Route: 048

REACTIONS (6)
  - Hypocalcaemia [Unknown]
  - Diarrhoea [Recovered/Resolved]
  - Dehydration [Recovered/Resolved]
  - Acute kidney injury [Unknown]
  - Jaundice cholestatic [Recovered/Resolved]
  - Jaundice [Not Recovered/Not Resolved]

NARRATIVE: CASE EVENT DATE: 20181129
